FAERS Safety Report 9806324 (Version 1)
Quarter: 2014Q1

REPORT INFORMATION
  Report Type: Spontaneous
  Country: FR (occurrence: FR)
  Receive Date: 20140109
  Receipt Date: 20140109
  Transmission Date: 20141002
  Serious: Yes (Hospitalization, Other)
  Sender: FDA-Public Use
  Company Number: FR-BRISTOL-MYERS SQUIBB COMPANY-19975598

PATIENT
  Age: 90 Year
  Sex: Female

DRUGS (10)
  1. COUMADINE [Suspect]
     Dosage: 2 MG SCORED TABLET ?01-OCT-2013, COUMADINE WAS INCREASED FROM 2 TO 3 MG
     Route: 048
     Dates: start: 20130924
  2. IXPRIM [Interacting]
     Route: 048
     Dates: start: 20131003, end: 20131029
  3. LODOZ [Concomitant]
  4. LASILIX [Concomitant]
  5. PERINDOPRIL [Concomitant]
  6. TEMERIT [Concomitant]
  7. DIFFU-K [Concomitant]
  8. ZOPICLONE [Concomitant]
  9. JAMYLENE [Concomitant]
  10. LANSOYL [Concomitant]

REACTIONS (2)
  - Haemorrhage [Recovered/Resolved]
  - Drug interaction [Unknown]
